FAERS Safety Report 10034216 (Version 2)
Quarter: 2014Q1

REPORT INFORMATION
  Report Type: Spontaneous
  Country: US (occurrence: US)
  Receive Date: 20140325
  Receipt Date: 20140325
  Transmission Date: 20141002
  Serious: Yes (Disabling)
  Sender: FDA-Public Use
  Company Number: US-GE HEALTHCARE MEDICAL DIAGNOSTICS-OSCN-PR-0712S-0496

PATIENT
  Age: 62 Year
  Sex: Male

DRUGS (4)
  1. OMNISCAN [Suspect]
     Indication: RENAL FAILURE
     Route: 042
     Dates: start: 20050909, end: 20050909
  2. OMNISCAN [Suspect]
     Indication: BACK PAIN
     Route: 042
     Dates: start: 20060711, end: 20060711
  3. OMNISCAN [Suspect]
     Indication: INTERVERTEBRAL DISC DISORDER
     Route: 042
     Dates: start: 20060817, end: 20060817
  4. OMNISCAN [Suspect]
     Indication: INTERVERTEBRAL DISC DISORDER
     Route: 042
     Dates: start: 20061026, end: 20061026

REACTIONS (1)
  - Nephrogenic systemic fibrosis [Not Recovered/Not Resolved]
